FAERS Safety Report 18395162 (Version 2)
Quarter: 2020Q4

REPORT INFORMATION
  Report Type: Other
  Country: IT (occurrence: IT)
  Receive Date: 20201016
  Receipt Date: 20201021
  Transmission Date: 20210114
  Serious: Yes (Hospitalization)
  Sender: FDA-Public Use
  Company Number: IT-B.BRAUN MEDICAL INC.-2092879

PATIENT
  Age: 28 Year
  Sex: Female

DRUGS (17)
  1. LIDOCAINE HYDROCHLORIDE AND DEXTROSE [Suspect]
     Active Substance: DEXTROSE\LIDOCAINE HYDROCHLORIDE
  2. MIDAZOLAM. [Suspect]
     Active Substance: MIDAZOLAM
  3. PHENYTOIN. [Suspect]
     Active Substance: PHENYTOIN
  4. PROPOFOL. [Suspect]
     Active Substance: PROPOFOL
  5. THIOPENTAL SODIUM. [Suspect]
     Active Substance: THIOPENTAL SODIUM
  6. VALPROATE SODIUM. [Suspect]
     Active Substance: VALPROATE SODIUM
  7. LACOSAMIDE. [Concomitant]
     Active Substance: LACOSAMIDE
  8. PERAMPANEL [Suspect]
     Active Substance: PERAMPANEL
  9. DESFLURANE. [Suspect]
     Active Substance: DESFLURANE
  10. MAGNESIUM [Suspect]
     Active Substance: MAGNESIUM
  11. PHENOBARBITAL. [Suspect]
     Active Substance: PHENOBARBITAL
  12. TOPIRAMATE. [Suspect]
     Active Substance: TOPIRAMATE
  13. ZONISAMIDE. [Suspect]
     Active Substance: ZONISAMIDE
  14. FLUNARIZINE [Suspect]
     Active Substance: FLUNARIZINE
  15. VALPROIC ACID. [Suspect]
     Active Substance: VALPROIC ACID
  16. KETAMINE HYDROCHLORIDE. [Suspect]
     Active Substance: KETAMINE HYDROCHLORIDE
  17. LEVETIRACETAM. [Suspect]
     Active Substance: LEVETIRACETAM

REACTIONS (1)
  - Drug ineffective [None]
